FAERS Safety Report 9649346 (Version 1)
Quarter: 2013Q4

REPORT INFORMATION
  Report Type: Spontaneous
  Country: CN (occurrence: CN)
  Receive Date: 20131028
  Receipt Date: 20131028
  Transmission Date: 20140711
  Serious: Yes (Other)
  Sender: FDA-Public Use
  Company Number: CN-PFIZER INC-2013306482

PATIENT
  Age: 55 Year
  Sex: Male

DRUGS (3)
  1. LIPITOR [Suspect]
     Indication: CARDIAC DISCOMFORT
     Dosage: 20 MG, 1X/DAY
     Route: 048
     Dates: start: 201304, end: 201308
  2. AMLODIPINE MALEATE [Concomitant]
     Dosage: UNK
     Dates: start: 201304, end: 201308
  3. VALSARTAN [Concomitant]
     Dosage: UNK
     Dates: start: 201304, end: 201308

REACTIONS (6)
  - Muscle atrophy [Recovered/Resolved]
  - Chest pain [Recovered/Resolved]
  - Myalgia [Recovered/Resolved]
  - Hypoaesthesia [Recovered/Resolved]
  - Hyperhidrosis [Recovered/Resolved]
  - Weight decreased [Recovered/Resolved]
